FAERS Safety Report 17121426 (Version 1)
Quarter: 2019Q4

REPORT INFORMATION
  Report Type: Spontaneous
  Country: US (occurrence: US)
  Receive Date: 20191205
  Receipt Date: 20191205
  Transmission Date: 20200122
  Serious: Yes (Other)
  Sender: FDA-Public Use
  Company Number: None

PATIENT
  Age: 51 Year
  Sex: Male
  Weight: 85.5 kg

DRUGS (10)
  1. ATORVASTATIN 20MG [Concomitant]
     Active Substance: ATORVASTATIN
     Dates: start: 20170302
  2. CHANTIX [Suspect]
     Active Substance: VARENICLINE TARTRATE
     Indication: SMOKING CESSATION THERAPY
     Route: 048
     Dates: start: 20180516, end: 20181204
  3. TRIUMEQ [Concomitant]
     Active Substance: ABACAVIR SULFATE\DOLUTEGRAVIR SODIUM\LAMIVUDINE
     Dates: start: 20160728
  4. SILDENAFIL 20MG [Concomitant]
     Active Substance: SILDENAFIL
     Dates: start: 20170714
  5. LANTUS 100UN/ML [Concomitant]
     Dates: start: 20180206
  6. OMEPRAZOLE 20MG [Concomitant]
     Active Substance: OMEPRAZOLE
     Dates: start: 20180126
  7. LISINOPRIL. [Concomitant]
     Active Substance: LISINOPRIL
     Dates: start: 20141008
  8. DIVALPROEX ER 500MG [Concomitant]
     Active Substance: DIVALPROEX SODIUM
     Dates: start: 20161122
  9. TRAZODONE [Concomitant]
     Active Substance: TRAZODONE HYDROCHLORIDE
     Dates: start: 20160728
  10. IBUPROFEN 600MG [Concomitant]
     Active Substance: IBUPROFEN
     Dates: start: 20180126

REACTIONS (2)
  - Irritability [None]
  - Drug intolerance [None]

NARRATIVE: CASE EVENT DATE: 20181204
